FAERS Safety Report 6679727-7 (Version None)
Quarter: 2010Q2

REPORT INFORMATION
  Report Type: 
  Country: None (occurrence: None)
  Receive Date: 20100413
  Receipt Date: 20100406
  Transmission Date: 20101027
  Serious: Yes (Death)
  Sender: FDA-Public Use
  Company Number: JP-MERCK-1004USA01332

PATIENT
  Age: 70 Year
  Sex: Male

DRUGS (2)
  1. JANUVIA [Suspect]
     Indication: DIABETES MELLITUS
     Route: 048
     Dates: start: 20100216, end: 20100401
  2. AMARYL [Concomitant]
     Indication: DIABETES MELLITUS
     Dosage: DIVIDED DOSE FREQUENCY U
     Route: 048
     Dates: end: 20100401

REACTIONS (1)
  - DEATH [None]
